FAERS Safety Report 20078650 (Version 1)
Quarter: 2021Q4

REPORT INFORMATION
  Report Type: Spontaneous
  Country: ES (occurrence: ES)
  Receive Date: 20211117
  Receipt Date: 20211117
  Transmission Date: 20220303
  Serious: Yes (Life-Threatening, Hospitalization, Other)
  Sender: FDA-Public Use
  Company Number: ES-AEMPS-1040164

PATIENT
  Age: 79 Year
  Sex: Male

DRUGS (3)
  1. DOCETAXEL [Suspect]
     Active Substance: DOCETAXEL
     Indication: Prostate cancer metastatic
     Dosage: 75 MILLIGRAM/SQ. METER,3 WEEKS
     Route: 042
     Dates: start: 20210817, end: 20210817
  2. AMOXICILLIN\CLAVULANIC ACID [Concomitant]
     Active Substance: AMOXICILLIN\CLAVULANIC ACID
     Indication: Febrile neutropenia
     Dosage: 1 DOSAGE FORM, 3 TIMES A DAY(875/125 MG EVERY 8 HOURS)
     Route: 048
     Dates: start: 20210823, end: 20210825
  3. CIPROFLOXACIN [Concomitant]
     Active Substance: CIPROFLOXACIN
     Indication: Febrile neutropenia
     Dosage: 500 MILLIGRAM, TWO TIMES A DAY(500MG EVERY 12 HOURS)
     Route: 048
     Dates: start: 20210823, end: 20210825

REACTIONS (2)
  - Agranulocytosis [Recovered/Resolved]
  - Rash pruritic [Recovered/Resolved]

NARRATIVE: CASE EVENT DATE: 20210823
